FAERS Safety Report 18627949 (Version 1)
Quarter: 2020Q4

REPORT INFORMATION
  Report Type: Spontaneous
  Country: ES (occurrence: ES)
  Receive Date: 20201217
  Receipt Date: 20201217
  Transmission Date: 20210114
  Serious: Yes (Other)
  Sender: FDA-Public Use
  Company Number: ES-MYLANLABS-2020M1101672

PATIENT
  Age: 68 Year
  Sex: Female

DRUGS (9)
  1. IMIPENEM [Suspect]
     Active Substance: IMIPENEM
     Indication: ANTIBIOTIC THERAPY
     Dosage: UNK
     Route: 065
  2. CEFTRIAXONE. [Suspect]
     Active Substance: CEFTRIAXONE
     Indication: ANTIBIOTIC THERAPY
     Dosage: UNK
     Route: 065
  3. CEFTRIAXONE. [Suspect]
     Active Substance: CEFTRIAXONE
     Indication: BRAIN ABSCESS
     Dosage: UNK
     Route: 065
  4. SULFADIAZINE. [Suspect]
     Active Substance: SULFADIAZINE
     Indication: BRAIN ABSCESS
     Dosage: UNK
     Route: 065
  5. CLINDAMYCIN. [Suspect]
     Active Substance: CLINDAMYCIN
     Indication: BRAIN ABSCESS
     Dosage: UNK
     Route: 065
  6. COTRIMOXAZOLE [Suspect]
     Active Substance: SULFAMETHOXAZOLE\TRIMETHOPRIM
     Indication: ANTIBIOTIC THERAPY
     Dosage: UNK
     Route: 065
  7. LINEZOLID. [Suspect]
     Active Substance: LINEZOLID
     Indication: ANTIBIOTIC THERAPY
     Dosage: UNK
     Route: 065
  8. PYRIMETHAMINE [Suspect]
     Active Substance: PYRIMETHAMINE
     Indication: BRAIN ABSCESS
     Dosage: UNK
     Route: 065
  9. METRONIDAZOLE. [Suspect]
     Active Substance: METRONIDAZOLE
     Indication: BRAIN ABSCESS
     Dosage: UNK
     Route: 065

REACTIONS (5)
  - Vomiting [Recovered/Resolved]
  - Gastrointestinal disorder [Recovered/Resolved]
  - Pancytopenia [Unknown]
  - Drug ineffective [Unknown]
  - Nausea [Recovered/Resolved]
